FAERS Safety Report 26127581 (Version 1)
Quarter: 2025Q4

REPORT INFORMATION
  Report Type: Spontaneous
  Country: CA (occurrence: CA)
  Receive Date: 20251206
  Receipt Date: 20251206
  Transmission Date: 20260117
  Serious: Yes (Hospitalization, Other)
  Sender: ACCORD
  Company Number: None

PATIENT
  Age: 38 Year
  Sex: Female
  Weight: 47 kg

DRUGS (13)
  1. APIXABAN [Suspect]
     Active Substance: APIXABAN
     Indication: Deep vein thrombosis
     Dosage: 1 EVERY 1 DAY
     Route: 048
  2. SODIUM CHLORIDE [Concomitant]
     Active Substance: SODIUM CHLORIDE
     Indication: Hypotension
     Route: 042
  3. TRAZODONE [Concomitant]
     Active Substance: TRAZODONE HYDROCHLORIDE
     Indication: Sleep disorder
     Route: 048
  4. ACETAMINOPHEN [Concomitant]
     Active Substance: ACETAMINOPHEN
     Indication: Pain
     Dosage: 1 EVERY 1 DAY
     Route: 048
  5. AMOXICILLIN TRIHYDRATE/CLAVULANATE [Concomitant]
     Indication: Pneumonia
     Dosage: 1 EVERY 12 HOURS
     Route: 048
  6. AZITHROMYCIN [Concomitant]
     Active Substance: AZITHROMYCIN
     Indication: Pneumonia
     Route: 042
  7. CEFTRIAXONE [Concomitant]
     Active Substance: CEFTRIAXONE
     Indication: Pneumonia
     Dosage: 1 EVERY 1 DAY
     Route: 042
  8. POLYETHYLENE GLYCOLS [Concomitant]
     Active Substance: POLYETHYLENE GLYCOLS
     Indication: Constipation
     Dosage: 1 EVERY 1 DAY
     Route: 048
  9. ACETAMINOPHEN [Concomitant]
     Active Substance: ACETAMINOPHEN
     Indication: Pain
     Dosage: 1 EVERY 4 HOURS
     Route: 048
  10. ACETAMINOPHEN [Concomitant]
     Active Substance: ACETAMINOPHEN
     Indication: Pain
     Route: 048
  11. AMOXICILLIN TRIHYDRATE/CLAVULANATE [Concomitant]
     Indication: Pneumonia
     Dosage: 1 EVERY 12 HOURS
     Route: 048
  12. AZITHROMYCIN [Concomitant]
     Active Substance: AZITHROMYCIN
     Indication: Pneumonia
     Dosage: 1 EVERY 1 DAY
     Route: 042
  13. CEFTRIAXONE [Concomitant]
     Active Substance: CEFTRIAXONE
     Indication: Pneumonia
     Route: 042

REACTIONS (6)
  - Pericardial effusion [Recovered/Resolved]
  - Pulmonary embolism [Recovered/Resolved]
  - Heavy menstrual bleeding [Recovered/Resolved]
  - Cardiac tamponade [Recovered/Resolved]
  - Haemoglobin decreased [Recovered/Resolved]
  - Atrial thrombosis [Recovered/Resolved]
